FAERS Safety Report 14631919 (Version 30)
Quarter: 2021Q3

REPORT INFORMATION
  Report Type: Spontaneous
  Country: CA (occurrence: CA)
  Receive Date: 20180313
  Receipt Date: 20210902
  Transmission Date: 20211014
  Serious: Yes (Hospitalization, Other)
  Sender: FDA-Public Use
  Company Number: CA-CELLTRION INC.-2018CA018066

PATIENT

DRUGS (31)
  1. INFLECTRA [Suspect]
     Active Substance: INFLIXIMAB-DYYB
     Dosage: 10 MG/KG (770 MG) 0, 2, WEEKS, THEN EVERY 8 WEEKS
     Route: 042
     Dates: start: 20180221, end: 20180530
  2. INFLECTRA [Suspect]
     Active Substance: INFLIXIMAB-DYYB
     Dosage: 5 MG/KG EVERY 8 WEEKS
     Route: 042
     Dates: start: 20200717
  3. INFLECTRA [Suspect]
     Active Substance: INFLIXIMAB-DYYB
     Dosage: 5 MG/KG EVERY 8 WEEKS
     Route: 042
     Dates: start: 20210519
  4. IMURAN [Concomitant]
     Active Substance: AZATHIOPRINE
     Dosage: UNK (UNKNOWN DOSAGE AND FREQUENCY)
     Route: 065
     Dates: start: 201701
  5. INFLECTRA [Suspect]
     Active Substance: INFLIXIMAB-DYYB
     Indication: CROHN^S DISEASE
     Dosage: 770 MG, 0, 2, WEEKS, THEN EVERY 8 WEEKS Q 0 WEEK DOSE
     Route: 042
     Dates: start: 20180221, end: 20180221
  6. INFLECTRA [Suspect]
     Active Substance: INFLIXIMAB-DYYB
     Dosage: 387 MG, EVERY 8 WEEKS
     Route: 042
     Dates: start: 20190529, end: 20190529
  7. INFLECTRA [Suspect]
     Active Substance: INFLIXIMAB-DYYB
     Dosage: 5 MG/KG EVERY 8 WEEKS
     Route: 042
     Dates: start: 20210625
  8. PREDNISONE. [Concomitant]
     Active Substance: PREDNISONE
     Indication: CROHN^S DISEASE
     Dosage: UNK (UNKNOWN DOSAGE AND FREQUENCY)
  9. INFLECTRA [Suspect]
     Active Substance: INFLIXIMAB-DYYB
     Dosage: 387 MG, EVERY 8 WEEKS
     Route: 042
     Dates: start: 20191115
  10. ACETAMINOPHEN. [Concomitant]
     Active Substance: ACETAMINOPHEN
     Dosage: 1000 MG, UNK
     Route: 048
     Dates: start: 20190529, end: 20190529
  11. ACETAMINOPHEN. [Concomitant]
     Active Substance: ACETAMINOPHEN
     Dosage: 650 MG
     Route: 048
     Dates: start: 20210625, end: 20210625
  12. INFLECTRA [Suspect]
     Active Substance: INFLIXIMAB-DYYB
     Dosage: 5 MG/KG
     Route: 042
     Dates: start: 20180725
  13. INFLECTRA [Suspect]
     Active Substance: INFLIXIMAB-DYYB
     Dosage: 5 MG/KG EVERY 8 WEEKS
     Route: 042
     Dates: start: 20210305, end: 20210305
  14. ACETAMINOPHEN. [Concomitant]
     Active Substance: ACETAMINOPHEN
     Indication: PREMEDICATION
     Dosage: 650 MG, UNK
     Route: 048
     Dates: start: 20180725
  15. INFLECTRA [Suspect]
     Active Substance: INFLIXIMAB-DYYB
     Dosage: 770 MG, 0, 2, WEEKS, THEN EVERY 8 WEEKS Q2 WEEK DOSE
     Route: 042
     Dates: start: 20180307, end: 20180307
  16. INFLECTRA [Suspect]
     Active Substance: INFLIXIMAB-DYYB
     Dosage: 5 MG/KG EVERY 8 WEEKS
     Route: 042
     Dates: start: 20180725
  17. INFLECTRA [Suspect]
     Active Substance: INFLIXIMAB-DYYB
     Dosage: 387 MG, EVERY 8 WEEKS
     Route: 042
     Dates: start: 20180920
  18. INFLECTRA [Suspect]
     Active Substance: INFLIXIMAB-DYYB
     Dosage: 387 MG, EVERY 8 WEEKS
     Route: 042
     Dates: start: 20190724
  19. INFLECTRA [Suspect]
     Active Substance: INFLIXIMAB-DYYB
     Dosage: 5 MG/KG EVERY 8 WEEKS
     Route: 042
     Dates: start: 20210115
  20. INFLECTRA [Suspect]
     Active Substance: INFLIXIMAB-DYYB
     Dosage: 5 MG/KG EVERY 8 WEEKS
     Route: 042
     Dates: start: 20210625
  21. INFLECTRA [Suspect]
     Active Substance: INFLIXIMAB-DYYB
     Dosage: 770 MG, 0, 2, WEEKS, THEN EVERY 8 WEEKS Q6 WEEK DOSE
     Route: 042
     Dates: start: 20180404, end: 20180404
  22. INFLECTRA [Suspect]
     Active Substance: INFLIXIMAB-DYYB
     Dosage: 387 MG, EVERY 8 WEEKS
     Route: 042
     Dates: start: 20180725, end: 20180725
  23. INFLECTRA [Suspect]
     Active Substance: INFLIXIMAB-DYYB
     Dosage: 387 MG, EVERY 8 WEEKS
     Route: 042
     Dates: start: 20190206
  24. INFLECTRA [Suspect]
     Active Substance: INFLIXIMAB-DYYB
     Dosage: 770 MG (10 MG/KG) Q 6 WEEK
     Route: 042
     Dates: start: 20180304, end: 20180304
  25. INFLECTRA [Suspect]
     Active Substance: INFLIXIMAB-DYYB
     Dosage: 770 MG, 0, 2, WEEKS, THEN EVERY 8 WEEKS
     Route: 042
     Dates: start: 20180530, end: 20180530
  26. ACETAMINOPHEN. [Concomitant]
     Active Substance: ACETAMINOPHEN
     Dosage: 650MG UNK
     Route: 048
     Dates: start: 20200717, end: 20200717
  27. INFLECTRA [Suspect]
     Active Substance: INFLIXIMAB-DYYB
     Dosage: 387 MG, EVERY 8 WEEKS
     Route: 042
     Dates: start: 20181121
  28. INFLECTRA [Suspect]
     Active Substance: INFLIXIMAB-DYYB
     Dosage: 387 MG, EVERY 8 WEEKS
     Route: 042
     Dates: start: 20200313, end: 20200504
  29. INFLECTRA [Suspect]
     Active Substance: INFLIXIMAB-DYYB
     Dosage: 5 MG/KG EVERY 8 WEEKS
     Route: 042
     Dates: start: 20200529
  30. INFLECTRA [Suspect]
     Active Substance: INFLIXIMAB-DYYB
     Dosage: 5 MG/KG EVERY 8 WEEKS
     Route: 042
     Dates: start: 20201106
  31. INFLECTRA [Suspect]
     Active Substance: INFLIXIMAB-DYYB
     Dosage: 5 MG/KG EVERY 8 WEEKS
     Route: 042
     Dates: start: 20210820

REACTIONS (27)
  - Off label use [Unknown]
  - Ligament sprain [Unknown]
  - Vaginal infection [Unknown]
  - Rash [Not Recovered/Not Resolved]
  - Musculoskeletal stiffness [Unknown]
  - Off label use [Unknown]
  - Nausea [Unknown]
  - Heart rate decreased [Unknown]
  - Tonsillar disorder [Unknown]
  - Mouth ulceration [Unknown]
  - Hyperaesthesia [Not Recovered/Not Resolved]
  - Weight increased [Unknown]
  - Skin irritation [Recovered/Resolved]
  - Condition aggravated [Recovering/Resolving]
  - Diarrhoea [Unknown]
  - Concussion [Unknown]
  - Fall [Unknown]
  - Weight fluctuation [Unknown]
  - Headache [Unknown]
  - Intentional product use issue [Unknown]
  - Hypersensitivity [Not Recovered/Not Resolved]
  - Papule [Not Recovered/Not Resolved]
  - Skin induration [Not Recovered/Not Resolved]
  - Inappropriate schedule of product administration [Unknown]
  - Fatigue [Unknown]
  - Vertigo [Not Recovered/Not Resolved]
  - Anal fissure [Not Recovered/Not Resolved]

NARRATIVE: CASE EVENT DATE: 20180221
